FAERS Safety Report 7001154-3 (Version None)
Quarter: 2010Q3

REPORT INFORMATION
  Report Type: 
  Country: None (occurrence: None)
  Receive Date: 20100920
  Receipt Date: 20100915
  Transmission Date: 20110219
  Serious: Yes (Hospitalization)
  Sender: FDA-Public Use
  Company Number: PHHY2010US61838

PATIENT
  Sex: Female

DRUGS (6)
  1. TOBI [Suspect]
     Indication: CYSTIC FIBROSIS
     Dosage: 300 MG, BID
  2. AZTREONAM [Concomitant]
  3. ZITHROMAX [Concomitant]
  4. ATIVAN [Concomitant]
     Indication: INSOMNIA
     Dosage: 2 MG, QHS
  5. ALKA-SELTZER [Concomitant]
     Indication: PAIN
  6. ALKA-SELTZER [Concomitant]
     Indication: DYSPEPSIA

REACTIONS (7)
  - BRONCHOSPASM [None]
  - CANDIDIASIS [None]
  - COUGH [None]
  - DYSPNOEA [None]
  - RESPIRATORY TRACT INFECTION [None]
  - STAPHYLOCOCCAL INFECTION [None]
  - THROAT IRRITATION [None]
